FAERS Safety Report 7762069-6 (Version None)
Quarter: 2011Q3

REPORT INFORMATION
  Report Type: 
  Country: None (occurrence: None)
  Receive Date: 20110920
  Receipt Date: 20110920
  Transmission Date: 20111222
  Serious: Yes (Hospitalization)
  Sender: FDA-Public Use
  Company Number: None

PATIENT
  Age: 28 Year
  Sex: Female
  Weight: 54.431 kg

DRUGS (1)
  1. CIPROFLOXACIN [Suspect]
     Indication: SMALL INTESTINAL BACTERIAL OVERGROWTH
     Dosage: 500MG
     Route: 048
     Dates: start: 20110914, end: 20110917

REACTIONS (3)
  - DIARRHOEA [None]
  - COLOUR BLINDNESS ACQUIRED [None]
  - ASTHENIA [None]
